FAERS Safety Report 9297097 (Version 1)
Quarter: 2013Q2

REPORT INFORMATION
  Report Type: Spontaneous
  Country: US (occurrence: US)
  Receive Date: 20130519
  Receipt Date: 20130519
  Transmission Date: 20140414
  Serious: No
  Sender: FDA-Public Use
  Company Number: US-ALLERGAN-1305448US

PATIENT
  Age: 6 Year
  Sex: Male

DRUGS (3)
  1. LASTACAFT [Suspect]
     Indication: EYE ALLERGY
     Dosage: 2 GTT, SINGLE
     Route: 047
     Dates: start: 20130411, end: 20130411
  2. FLOVENT [Concomitant]
     Indication: ASTHMA
     Dosage: UNK UNK, QD
     Route: 055
     Dates: start: 201205
  3. ALBUTEROL                          /00139501/ [Concomitant]
     Indication: ASTHMA
     Dosage: UNK UNK, PRN
     Route: 055

REACTIONS (5)
  - Rash macular [Unknown]
  - Eye pain [Unknown]
  - Rash macular [Unknown]
  - Rash erythematous [Unknown]
  - Rash erythematous [Unknown]
